FAERS Safety Report 13798514 (Version 2)
Quarter: 2017Q3

REPORT INFORMATION
  Report Type: Report from Study
  Country: None (occurrence: AR)
  Receive Date: 20170727
  Receipt Date: 20170811
  Transmission Date: 20171127
  Serious: Yes (Other)
  Sender: FDA-Public Use
  Company Number: AR-ABBVIE-17K-007-2026938-00

PATIENT
  Age: 15 Year
  Sex: Female
  Weight: 38 kg

DRUGS (1)
  1. HUMIRA [Suspect]
     Active Substance: ADALIMUMAB
     Indication: JUVENILE IDIOPATHIC ARTHRITIS
     Route: 058
     Dates: start: 20150101, end: 20170611

REACTIONS (8)
  - Osteosclerosis [Unknown]
  - Joint dislocation [Unknown]
  - Joint swelling [Recovering/Resolving]
  - Osteoarthritis [Unknown]
  - Femoroacetabular impingement [Unknown]
  - Hip deformity [Unknown]
  - Loss of personal independence in daily activities [Unknown]
  - Arthralgia [Recovering/Resolving]

NARRATIVE: CASE EVENT DATE: 20170608
